FAERS Safety Report 6222129-8 (Version None)
Quarter: 2009Q2

REPORT INFORMATION
  Report Type: 
  Country: None (occurrence: None)
  Receive Date: 20090611
  Receipt Date: 20090608
  Transmission Date: 20091009
  Serious: Yes (Disabling, Other)
  Sender: FDA-Public Use
  Company Number: FR-ALLERGAN-0904598US

PATIENT
  Age: 44 Year
  Sex: Female

DRUGS (7)
  1. BOTOX [Suspect]
     Indication: MUSCLE SPASTICITY
     Dosage: 300 UNITS, SINGLE
     Route: 030
     Dates: start: 20081205, end: 20081205
  2. IMOVANE + OGAST [Concomitant]
     Dosage: 1 TABLET, QD, WITH SOLUMEDROL BOLUS
     Route: 048
     Dates: start: 20081213, end: 20081222
  3. SOLU-MEDROL [Concomitant]
     Dosage: 1 G, QD, FOR 3 DAYS, MONTHLY BOLUS
     Route: 042
     Dates: start: 20081212, end: 20081215
  4. MANTADIX [Concomitant]
     Indication: FATIGUE
     Dosage: UNK, BID
     Route: 048
     Dates: start: 20081124, end: 20081223
  5. MANTADIX [Concomitant]
     Indication: MULTIPLE SCLEROSIS
  6. LIORESAL [Concomitant]
     Indication: MUSCLE SPASTICITY
     Dosage: UNK, BID
     Route: 048
     Dates: start: 20081124, end: 20081223
  7. HEXAQUINE [Concomitant]
     Indication: MUSCLE SPASMS
     Dosage: UNK, BID
     Route: 048
     Dates: start: 20081124, end: 20081223

REACTIONS (3)
  - ANGIOEDEMA [None]
  - PRURITUS [None]
  - RASH GENERALISED [None]
